FAERS Safety Report 10190377 (Version 2)
Quarter: 2014Q2

REPORT INFORMATION
  Report Type: Spontaneous
  Country: US (occurrence: US)
  Receive Date: 20140522
  Receipt Date: 20140527
  Transmission Date: 20141212
  Serious: Yes (Other)
  Sender: FDA-Public Use
  Company Number: US-JNJFOC-20140513183

PATIENT
  Sex: 0

DRUGS (2)
  1. SIMEPREVIR [Suspect]
     Indication: CHRONIC HEPATITIS C
     Route: 048
  2. SOVALDI [Suspect]
     Indication: CHRONIC HEPATITIS C
     Route: 048

REACTIONS (2)
  - Hypersensitivity [Recovered/Resolved]
  - Off label use [Unknown]
